FAERS Safety Report 17601851 (Version 1)
Quarter: 2020Q1

REPORT INFORMATION
  Report Type: Spontaneous
  Country: US (occurrence: US)
  Receive Date: 20200331
  Receipt Date: 20200331
  Transmission Date: 20200409
  Serious: Yes (Hospitalization)
  Sender: FDA-Public Use
  Company Number: US-ROCHE-2571656

PATIENT
  Age: 60 Year
  Sex: Male
  Weight: 99 kg

DRUGS (1)
  1. OCREVUS [Suspect]
     Active Substance: OCRELIZUMAB
     Indication: MULTIPLE SCLEROSIS
     Dosage: ONGOING: NO
     Route: 065
     Dates: start: 20171004, end: 20191007

REACTIONS (4)
  - Urinary tract infection [Unknown]
  - Pleural effusion [Unknown]
  - Pericardial effusion [Unknown]
  - Atelectasis [Unknown]

NARRATIVE: CASE EVENT DATE: 20191004
